FAERS Safety Report 4561303-3 (Version None)
Quarter: 2005Q1

REPORT INFORMATION
  Report Type: 
  Country: None (occurrence: None)
  Receive Date: 20050126
  Receipt Date: 20050118
  Transmission Date: 20050727
  Serious: Yes (Death, Other)
  Sender: FDA-Public Use
  Company Number: PHBS2005BE01140

PATIENT
  Age: 50 Year
  Sex: Male

DRUGS (1)
  1. SANDIMMUNE [Suspect]
     Indication: PSORIASIS
     Route: 048

REACTIONS (3)
  - CEREBRAL HAEMORRHAGE [None]
  - CEREBROVASCULAR ACCIDENT [None]
  - HYPERTENSION [None]
